FAERS Safety Report 4860828-0 (Version None)
Quarter: 2005Q4

REPORT INFORMATION
  Report Type: 
  Country: None (occurrence: None)
  Receive Date: 20051216
  Receipt Date: 20051205
  Transmission Date: 20060501
  Serious: Yes (Hospitalization)
  Sender: FDA-Public Use
  Company Number: S05-USA-05176-01

PATIENT
  Sex: Female

DRUGS (1)
  1. LEXAPRO [Suspect]
     Dosage: 20 MG QD PO
     Route: 048
     Dates: start: 20051114

REACTIONS (1)
  - DELIRIUM [None]
